FAERS Safety Report 10706649 (Version 3)
Quarter: 2015Q1

REPORT INFORMATION
  Report Type: Spontaneous
  Country: DE (occurrence: DE)
  Receive Date: 20150113
  Receipt Date: 20150224
  Transmission Date: 20150721
  Serious: Yes (Other)
  Sender: FDA-Public Use
  Company Number: PHHY2015DE002149

PATIENT
  Age: 55 Year
  Sex: Male

DRUGS (3)
  1. SIGNIFOR [Suspect]
     Active Substance: PASIREOTIDE
     Indication: PRODUCT USED FOR UNKNOWN INDICATION
     Dosage: 0.3 MG, UNK
     Route: 065
     Dates: start: 20140707
  2. SIGNIFOR [Suspect]
     Active Substance: PASIREOTIDE
     Dosage: 0.6 UNK, UNK
     Route: 065
  3. SIGNIFOR [Suspect]
     Active Substance: PASIREOTIDE
     Dosage: 0.9 UNK, UNK
     Route: 065
     Dates: end: 20150107

REACTIONS (8)
  - Blood glucose increased [Recovering/Resolving]
  - Weight decreased [Unknown]
  - Adrenal neoplasm [Unknown]
  - Dizziness [Unknown]
  - Injection site pain [Unknown]
  - Diarrhoea [Unknown]
  - Abdominal pain [Unknown]
  - Visual impairment [Recovering/Resolving]
